FAERS Safety Report 19733823 (Version 2)
Quarter: 2021Q3

REPORT INFORMATION
  Report Type: Spontaneous
  Country: IT (occurrence: IT)
  Receive Date: 20210823
  Receipt Date: 20210917
  Transmission Date: 20211014
  Serious: Yes (Hospitalization)
  Sender: FDA-Public Use
  Company Number: IT-MACLEODS PHARMACEUTICALS US LTD-MAC2021032391

PATIENT

DRUGS (6)
  1. L DOPA [Concomitant]
     Active Substance: LEVODOPA
     Indication: PARKINSONISM
  2. DONEPEZIL. [Suspect]
     Active Substance: DONEPEZIL
     Indication: PARKINSONISM
  3. QUETIAPINE. [Concomitant]
     Active Substance: QUETIAPINE
     Indication: DEMENTIA WITH LEWY BODIES
     Dosage: 25 MILLIGRAM, QD, AT NIGHTTIME
     Route: 065
  4. QUETIAPINE. [Concomitant]
     Active Substance: QUETIAPINE
     Indication: PARKINSONISM
  5. L DOPA [Concomitant]
     Active Substance: LEVODOPA
     Indication: DEMENTIA WITH LEWY BODIES
     Dosage: UNK, ADMINISTERED IN FIVE DOSES
     Route: 065
  6. DONEPEZIL. [Suspect]
     Active Substance: DONEPEZIL
     Indication: DEMENTIA WITH LEWY BODIES
     Dosage: 5 DOSAGE FORM, QD (FIVE TABLETS OF DONEPEZIL), MEMAC
     Route: 048

REACTIONS (3)
  - Parkinsonism [Recovered/Resolved]
  - Incorrect dose administered [Unknown]
  - Overdose [Unknown]
